FAERS Safety Report 7747273-5 (Version None)
Quarter: 2011Q3

REPORT INFORMATION
  Report Type: 
  Country: None (occurrence: None)
  Receive Date: 20110913
  Receipt Date: 20110908
  Transmission Date: 20111222
  Serious: Yes (Other)
  Sender: FDA-Public Use
  Company Number: GB-PFIZER INC-2011211874

PATIENT
  Age: 51 Year
  Sex: Female

DRUGS (5)
  1. PERINDOPRIL [Concomitant]
  2. ACETYLSALICYLIC ACID [Concomitant]
  3. SERTRALINE HYDROCHLORIDE [Suspect]
     Indication: DEPRESSION
     Dosage: 50 MG, UNK
     Route: 048
     Dates: end: 20110723
  4. SERTRALINE HYDROCHLORIDE [Suspect]
     Dosage: 100 MG, UNK
     Route: 048
     Dates: start: 20110724, end: 20110830
  5. BISOPROLOL [Concomitant]

REACTIONS (2)
  - AKATHISIA [None]
  - RESTLESSNESS [None]
